FAERS Safety Report 8063998-9 (Version None)
Quarter: 2012Q1

REPORT INFORMATION
  Report Type: 
  Country: None (occurrence: None)
  Receive Date: 20120123
  Receipt Date: 20120120
  Transmission Date: 20120608
  Serious: Yes (Life-Threatening, Hospitalization)
  Sender: FDA-Public Use
  Company Number: PHEH2011US010326

PATIENT
  Sex: Male
  Weight: 64 kg

DRUGS (1)
  1. RECLAST [Suspect]
     Indication: OSTEOPOROSIS
     Dosage: 5 MG, UNK
     Route: 042
     Dates: start: 20110819

REACTIONS (11)
  - MYOCARDIAL INFARCTION [None]
  - NAUSEA [None]
  - HEADACHE [None]
  - DECREASED APPETITE [None]
  - CHILLS [None]
  - FEELING ABNORMAL [None]
  - VOMITING [None]
  - CHEST PAIN [None]
  - NECK PAIN [None]
  - ARTHRALGIA [None]
  - PYREXIA [None]
